FAERS Safety Report 5423228-0 (Version None)
Quarter: 2007Q3

REPORT INFORMATION
  Report Type: 
  Country: None (occurrence: None)
  Receive Date: 20070730
  Receipt Date: 20070322
  Transmission Date: 20080115
  Serious: Yes (Other)
  Sender: FDA-Public Use
  Company Number: 200710088BWH

PATIENT
  Age: 53 Year
  Sex: Female
  Weight: 360 kg

DRUGS (1)
  1. AVELOX [Suspect]
     Indication: ACUTE SINUSITIS
     Dosage: 400 MG, QD; ORAL
     Route: 048
     Dates: start: 20061221, end: 20061228

REACTIONS (4)
  - ANAPHYLACTIC REACTION [None]
  - JOINT SWELLING [None]
  - SWELLING FACE [None]
  - URTICARIA [None]
